FAERS Safety Report 5734784-7 (Version None)
Quarter: 2008Q2

REPORT INFORMATION
  Report Type: 
  Country: None (occurrence: None)
  Receive Date: 20080512
  Receipt Date: 20080508
  Transmission Date: 20081010
  Serious: Yes (Other)
  Sender: FDA-Public Use
  Company Number: PHNU2008DE01569

PATIENT
  Age: 61 Year
  Sex: Male
  Weight: 110 kg

DRUGS (6)
  1. CLONIDINE HCL [Concomitant]
     Indication: HYPERTENSION
     Dosage: 450 MG/D
     Route: 048
  2. ATACAND HCT [Concomitant]
     Indication: HYPERTENSION
  3. SEREVENT [Concomitant]
     Indication: ASTHMA
  4. FLUTIDE [Concomitant]
     Indication: ASTHMA
     Dosage: 1000 MG/D
  5. TORSEMIDE [Concomitant]
     Dosage: 20 MG/D
     Route: 048
  6. RASILEZ [Suspect]
     Indication: HYPERTENSION
     Dosage: 150 MG/D
     Route: 048
     Dates: start: 20080208, end: 20080229

REACTIONS (3)
  - DERMATITIS BULLOUS [None]
  - ERYTHEMA NODOSUM [None]
  - SKIN ULCER [None]
